FAERS Safety Report 5001550-X (Version None)
Quarter: 2006Q2

REPORT INFORMATION
  Report Type: 
  Country: None (occurrence: None)
  Receive Date: 20060511
  Receipt Date: 20060502
  Transmission Date: 20061013
  Serious: Yes (Hospitalization)
  Sender: FDA-Public Use
  Company Number: 2006-01759

PATIENT
  Age: 70 Year
  Sex: Female

DRUGS (8)
  1. FLUVOXAMINE (WATSON LABORATORIES) (FLUVOXAMINE MALEATE) TABLET [Suspect]
     Indication: DEPRESSION
     Dosage: 200 MG, QAM, ORAL
     Route: 048
  2. OXYCODONE HYDROCHLORIDE/APAP (WATSON) (ACETAMINOPHEN, OXYCODONE HYDROC [Suspect]
     Indication: PAIN
     Dosage: 10 MG, PRN,
  3. DOXEPIN HCL [Concomitant]
  4. DICLOFENAC (DICLOFENAC) [Concomitant]
  5. RALOXIFENE HCL [Concomitant]
  6. CALCIUM CARBONATE (CALCIUM CARBONATE) [Concomitant]
  7. DILTIAZEM [Concomitant]
  8. SIMVASTATIN [Concomitant]

REACTIONS (2)
  - DRUG INTERACTION [None]
  - SEROTONIN SYNDROME [None]
